FAERS Safety Report 6854138-X (Version None)
Quarter: 2010Q3

REPORT INFORMATION
  Report Type: 
  Country: None (occurrence: None)
  Receive Date: 20100717
  Receipt Date: 20080207
  Transmission Date: 20110219
  Serious: No
  Sender: FDA-Public Use
  Company Number: US-PFIZER INC-2007106379

PATIENT
  Sex: Female
  Weight: 78.5 kg

DRUGS (7)
  1. CHANTIX [Suspect]
     Indication: SMOKING CESSATION THERAPY
     Route: 048
     Dates: start: 20071001, end: 20071101
  2. ACETYLSALICYLIC ACID [Concomitant]
     Route: 048
  3. ACCUPRIL [Concomitant]
     Route: 048
  4. CARTIA XT [Concomitant]
     Route: 048
  5. ALL OTHER THERAPEUTIC PRODUCTS [Concomitant]
     Route: 048
  6. ZETIA [Concomitant]
     Route: 048
  7. METFORMIN HCL [Concomitant]
     Route: 048

REACTIONS (1)
  - FUNGAL INFECTION [None]
